FAERS Safety Report 7269008-5 (Version None)
Quarter: 2011Q1

REPORT INFORMATION
  Report Type: 
  Country: None (occurrence: None)
  Receive Date: 20110202
  Receipt Date: 20110127
  Transmission Date: 20110831
  Serious: Yes (Other)
  Sender: FDA-Public Use
  Company Number: FR-BIOGENIDEC-2010BI030394

PATIENT
  Age: 31 Year
  Sex: Female

DRUGS (5)
  1. LAROXYL [Concomitant]
     Indication: NEURALGIA
  2. TYSABRI [Suspect]
     Indication: MULTIPLE SCLEROSIS
     Route: 042
     Dates: start: 20090811, end: 20100716
  3. TYSABRI [Suspect]
     Route: 042
     Dates: start: 20101027
  4. CONTRACEPTIVE PILL [Concomitant]
     Indication: CONTRACEPTION
  5. MODAFINIL [Concomitant]
     Indication: FATIGUE
     Dates: end: 20101201

REACTIONS (1)
  - ABORTION SPONTANEOUS [None]
